FAERS Safety Report 5798179-2 (Version None)
Quarter: 2008Q3

REPORT INFORMATION
  Report Type: 
  Country: None (occurrence: None)
  Receive Date: 20080702
  Receipt Date: 20080624
  Transmission Date: 20090109
  Serious: Yes (Hospitalization)
  Sender: FDA-Public Use
  Company Number: A0734564A

PATIENT
  Age: 74 Year
  Sex: Male

DRUGS (14)
  1. LANOXIN [Suspect]
     Indication: CARDIAC FAILURE
     Dosage: .125MG PER DAY
     Route: 048
     Dates: start: 20040101
  2. ZYPREXA [Suspect]
     Indication: FATIGUE
     Route: 048
     Dates: start: 20070901, end: 20070901
  3. FUROSEMIDE [Concomitant]
  4. PLAVIX [Concomitant]
  5. COUMADIN [Concomitant]
  6. OMEPRAZOLE [Concomitant]
  7. QUININE SULFATE [Concomitant]
  8. ADVAIR DISKUS 100/50 [Concomitant]
  9. XOPENEX [Concomitant]
  10. COMBIVENT [Concomitant]
  11. DIAZEPAM [Concomitant]
  12. HYDROCODONE [Concomitant]
  13. NYSTATIN [Concomitant]
  14. OXYGEN [Concomitant]

REACTIONS (9)
  - ANAEMIA [None]
  - ARRHYTHMIA [None]
  - ASTHENIA [None]
  - COLITIS ULCERATIVE [None]
  - CONSTIPATION [None]
  - DELIRIUM [None]
  - GASTROINTESTINAL DISORDER [None]
  - HYPOTENSION [None]
  - MALAISE [None]
